FAERS Safety Report 9146029 (Version 1)
Quarter: 2013Q1

REPORT INFORMATION
  Report Type: Spontaneous
  Country: US (occurrence: US)
  Receive Date: 20130307
  Receipt Date: 20130307
  Transmission Date: 20140127
  Serious: No
  Sender: FDA-Public Use
  Company Number: US-BAYER-2013-028829

PATIENT
  Age: 86 Year
  Sex: Female
  Weight: 63 kg

DRUGS (5)
  1. ALEVE CAPLET/TABLET,MIDOL EXTENDED RELIEF CAPLET [Suspect]
     Indication: ARTHRALGIA
     Dosage: 1 DF, TID
     Route: 048
     Dates: start: 2012
  2. VITAMIN C [Concomitant]
     Dosage: 1 DF, QID
     Route: 048
     Dates: start: 2012
  3. CALCIUM [Concomitant]
  4. LEVOTHYROXIN [Concomitant]
  5. SIMVASTATIN [Concomitant]

REACTIONS (2)
  - Overdose [None]
  - Drug ineffective [None]
